FAERS Safety Report 6672778-8 (Version None)
Quarter: 2010Q2

REPORT INFORMATION
  Report Type: 
  Country: None (occurrence: None)
  Receive Date: 20100406
  Receipt Date: 20100322
  Transmission Date: 20101027
  Serious: Yes (Life-Threatening, Other)
  Sender: FDA-Public Use
  Company Number: AUR-APL-2010-00889

PATIENT
  Sex: Male

DRUGS (8)
  1. METFORMIN HCL [Suspect]
     Dosage: 500MG - BID
  2. GLYBURIDE [Suspect]
  3. LANTUS [Suspect]
     Dosage: 25UNITS - QPM
  4. LIPITOR [Suspect]
     Dosage: 40MG
  5. METOPROLOL SUCCINATE [Suspect]
     Dosage: 25MG - QAM
  6. TRICOR [Suspect]
  7. COENZYME Q10 [Suspect]
  8. GLUCOSAMINE [Suspect]

REACTIONS (1)
  - MYOCARDIAL INFARCTION [None]
